FAERS Safety Report 8219200-8 (Version None)
Quarter: 2012Q1

REPORT INFORMATION
  Report Type: 
  Country: None (occurrence: None)
  Receive Date: 20120307
  Receipt Date: 20091119
  Transmission Date: 20120608
  Serious: Yes (Hospitalization)
  Sender: FDA-Public Use
  Company Number: PHEH2009US16773

PATIENT
  Age: 65 Year
  Sex: Female

DRUGS (2)
  1. AFINITOR [Suspect]
     Dosage: UNK
  2. CELEXA [Concomitant]

REACTIONS (2)
  - COUGH [None]
  - WHEEZING [None]
